FAERS Safety Report 7053778-5 (Version None)
Quarter: 2010Q4

REPORT INFORMATION
  Report Type: 
  Country: None (occurrence: None)
  Receive Date: 20101020
  Receipt Date: 20101012
  Transmission Date: 20110411
  Serious: Yes (Other)
  Sender: FDA-Public Use
  Company Number: B0674016A

PATIENT
  Sex: Male

DRUGS (5)
  1. ALKERAN [Suspect]
     Indication: CHEMOTHERAPY
     Dosage: 250MG PER DAY
     Route: 042
     Dates: start: 20090810, end: 20090810
  2. ENDOXAN [Suspect]
     Indication: CHEMOTHERAPY
     Dosage: 4600MG PER DAY
     Dates: start: 20090807, end: 20090808
  3. ETOPOSIDE [Suspect]
     Indication: CHEMOTHERAPY
     Dosage: 600MG PER DAY
     Dates: start: 20090807, end: 20090809
  4. DECADRON [Concomitant]
     Indication: CHEMOTHERAPY
     Dosage: 40MG PER DAY
     Route: 065
     Dates: start: 20090807, end: 20090810
  5. RITUXAN [Concomitant]
     Dosage: 700MG PER DAY
     Dates: start: 20090806

REACTIONS (11)
  - DECREASED APPETITE [None]
  - DIARRHOEA [None]
  - FEELING ABNORMAL [None]
  - GASTROINTESTINAL MUCOSAL DISORDER [None]
  - HAEMORRHAGE [None]
  - MALAISE [None]
  - NAUSEA [None]
  - NEUTROPHIL COUNT DECREASED [None]
  - ORAL PAIN [None]
  - RENAL IMPAIRMENT [None]
  - STOMATITIS [None]
